FAERS Safety Report 6183703-0 (Version None)
Quarter: 2009Q2

REPORT INFORMATION
  Report Type: 
  Country: None (occurrence: None)
  Receive Date: 20090506
  Receipt Date: 20090420
  Transmission Date: 20091009
  Serious: Yes (Death)
  Sender: FDA-Public Use
  Company Number: WAES 0807CAN00125

PATIENT
  Age: 76 Year
  Sex: Male

DRUGS (7)
  1. HYZAAR [Suspect]
     Indication: ESSENTIAL HYPERTENSION
     Dosage: 50-12.5 MG/DAILY, PO; 100-12.5 MG/DAILY, PO;
     Route: 048
     Dates: start: 20080423, end: 20080428
  2. HYZAAR [Suspect]
     Indication: ESSENTIAL HYPERTENSION
     Dosage: 50-12.5 MG/DAILY, PO; 100-12.5 MG/DAILY, PO;
     Route: 048
     Dates: start: 20080529, end: 20081210
  3. ATORVASTATIN CALCIUM [Concomitant]
  4. LEVOTHYROXINE SODIUM [Concomitant]
  5. LISINOPRIL [Concomitant]
  6. PANTOPRAZOLE SODIUM [Concomitant]
  7. ROSIGLITAZONE MALEATE [Concomitant]

REACTIONS (9)
  - ACUTE MYOCARDIAL INFARCTION [None]
  - BARRETT'S OESOPHAGUS [None]
  - BLOOD PRESSURE SYSTOLIC INCREASED [None]
  - CARDIAC MURMUR [None]
  - MULTIPLE MYELOMA [None]
  - PNEUMONIA KLEBSIELLA [None]
  - POLYNEUROPATHY [None]
  - RENAL FAILURE ACUTE [None]
  - VISUAL IMPAIRMENT [None]
